FAERS Safety Report 8816920 (Version 1)
Quarter: 2012Q4

REPORT INFORMATION
  Report Type: Spontaneous
  Country: US (occurrence: None)
  Receive Date: 20121002
  Receipt Date: 20121002
  Transmission Date: 20130627
  Serious: Yes (Hospitalization)
  Sender: FDA-Public Use
  Company Number: None

PATIENT
  Age: 61 Year
  Sex: Female
  Weight: 99.34 kg

DRUGS (1)
  1. DOCETAXEL [Suspect]

REACTIONS (3)
  - Dizziness [None]
  - Atrial fibrillation [None]
  - Visual impairment [None]
